FAERS Safety Report 13035211 (Version 2)
Quarter: 2017Q1

REPORT INFORMATION
  Report Type: Spontaneous
  Country: IT (occurrence: IT)
  Receive Date: 20161216
  Receipt Date: 20170103
  Transmission Date: 20170428
  Serious: Yes (Other)
  Sender: FDA-Public Use
  Company Number: IT-TEVA-715244ACC

PATIENT
  Age: 70 Year
  Sex: Male

DRUGS (2)
  1. ETOPOSIDE TEVA - 20 MG/ML CONCENTRATO PER SOLUZIONE PER INFUSIONE - TE [Suspect]
     Active Substance: ETOPOSIDE
     Indication: NEOPLASM OF THYMUS
     Dosage: 177 MG CYCLICAL
     Dates: start: 20161109, end: 20161109
  2. CISPLATINO ACCORD HEALTHCARE ITALIA - 1 MG/ML - ACCORD HEALTHCARE LIMI [Concomitant]
     Indication: NEOPLASM OF THYMUS
     Dosage: 53.1 MG
     Route: 042
     Dates: start: 20161109, end: 20161109

REACTIONS (3)
  - Hypoxia [Recovered/Resolved]
  - Off label use [Unknown]
  - Vomiting [Recovered/Resolved]

NARRATIVE: CASE EVENT DATE: 20161109
